FAERS Safety Report 5509089-X (Version None)
Quarter: 2007Q4

REPORT INFORMATION
  Report Type: 
  Country: None (occurrence: None)
  Receive Date: 20071026
  Receipt Date: 20070710
  Transmission Date: 20080405
  Serious: Yes (Death)
  Sender: FDA-Public Use
  Company Number: CLOF-10595

PATIENT
  Age: 17 Year
  Sex: Male

DRUGS (3)
  1. CLOLAR [Suspect]
     Indication: ACUTE LYMPHOCYTIC LEUKAEMIA
     Dosage: 52 MG/M2 DAILY IV
     Route: 042
     Dates: start: 20070501, end: 20070501
  2. CLOLAR [Suspect]
     Indication: ACUTE LYMPHOCYTIC LEUKAEMIA
     Dosage: 52 MG/M2 DAILY IV
     Route: 042
     Dates: start: 20070101, end: 20070101
  3. CLOLAR [Suspect]
     Indication: ACUTE LYMPHOCYTIC LEUKAEMIA
     Dosage: 52 MG/M2 DAILY IV
     Route: 042
     Dates: start: 20070101, end: 20070101

REACTIONS (2)
  - NEUTROPENIA [None]
  - PNEUMONIA [None]
